FAERS Safety Report 5290702-X (Version None)
Quarter: 2007Q2

REPORT INFORMATION
  Report Type: 
  Country: None (occurrence: None)
  Receive Date: 20070409
  Receipt Date: 20070406
  Transmission Date: 20071010
  Serious: Yes (Hospitalization)
  Sender: FDA-Public Use
  Company Number: US-BRISTOL-MYERS SQUIBB COMPANY-13720479

PATIENT
  Age: 58 Year
  Sex: Female
  Weight: 67 kg

DRUGS (15)
  1. PACLITAXEL [Suspect]
     Indication: BREAST CANCER METASTATIC
     Route: 042
     Dates: start: 20070207, end: 20070207
  2. GEMZAR [Suspect]
     Indication: BREAST CANCER METASTATIC
     Route: 042
     Dates: start: 20070131, end: 20070131
  3. BEVACIZUMAB [Suspect]
     Indication: BREAST CANCER METASTATIC
     Route: 042
     Dates: start: 20070117, end: 20070117
  4. LIPITOR [Concomitant]
     Dates: end: 20070302
  5. LISINOPRIL [Concomitant]
  6. TOPROL-XL [Concomitant]
  7. HYDROCHLOROTHIAZIDE [Concomitant]
  8. TRICOR [Concomitant]
  9. MULTI-VITAMIN [Concomitant]
  10. POTASSIUM ACETATE [Concomitant]
  11. GLUCOSAMINE [Concomitant]
  12. PROCRIT [Concomitant]
     Dates: start: 20070112
  13. CLARITIN-D [Concomitant]
     Dates: start: 20070124
  14. LEXAPRO [Concomitant]
     Dates: start: 20070207
  15. SENNA [Concomitant]
     Dates: start: 20061207

REACTIONS (1)
  - MYOPATHY TOXIC [None]
